FAERS Safety Report 26078430 (Version 1)
Quarter: 2025Q4

REPORT INFORMATION
  Report Type: Report from Study
  Country: JP (occurrence: JP)
  Receive Date: 20251123
  Receipt Date: 20251123
  Transmission Date: 20260119
  Serious: Yes (Death, Other)
  Sender: ALEXION PHARMACEUTICALS
  Company Number: JP-ASTRAZENECA-230055804_013220_P_1

PATIENT
  Age: 89 Year
  Sex: Male
  Weight: 55 kg

DRUGS (3)
  1. DURVALUMAB [Suspect]
     Active Substance: DURVALUMAB
     Indication: Hepatocellular carcinoma
     Dosage: 1500 MILLIGRAM, UNK
     Dates: start: 20230518, end: 20230518
  2. TREMELIMUMAB [Suspect]
     Active Substance: TREMELIMUMAB
     Indication: Hepatocellular carcinoma
     Dosage: 300 MG
     Dates: start: 20230518, end: 20230518
  3. PREDNISOLONE [Concomitant]
     Active Substance: PREDNISOLONE
     Dosage: 0.5/KG
     Route: 065

REACTIONS (2)
  - Diarrhoea [Recovering/Resolving]
  - Tumour hyperprogression [Fatal]

NARRATIVE: CASE EVENT DATE: 20230625
